FAERS Safety Report 18646789 (Version 2)
Quarter: 2020Q4

REPORT INFORMATION
  Report Type: Spontaneous
  Country: US (occurrence: US)
  Receive Date: 20201222
  Receipt Date: 20201224
  Transmission Date: 20210114
  Serious: Yes (Other)
  Sender: FDA-Public Use
  Company Number: US-SA-2020SA363893

PATIENT

DRUGS (1)
  1. ZANTAC [Suspect]
     Active Substance: RANITIDINE HYDROCHLORIDE
     Indication: DYSPEPSIA
     Dosage: UNK, QD
     Dates: start: 201304, end: 201601

REACTIONS (2)
  - Bladder cancer stage III [Not Recovered/Not Resolved]
  - Renal cancer stage III [Unknown]

NARRATIVE: CASE EVENT DATE: 20160101
